FAERS Safety Report 20965302 (Version 1)
Quarter: 2022Q2

REPORT INFORMATION
  Report Type: Spontaneous
  Country: BR (occurrence: BR)
  Receive Date: 20220616
  Receipt Date: 20220616
  Transmission Date: 20220720
  Serious: Yes (Other)
  Sender: FDA-Public Use
  Company Number: BR-BIOGEN-2022BI01131377

PATIENT
  Age: 3 Year

DRUGS (1)
  1. SPINRAZA [Suspect]
     Active Substance: NUSINERSEN
     Indication: Spinal muscular atrophy
     Route: 037

REACTIONS (6)
  - Cerebrospinal fluid circulation disorder [Unknown]
  - Thrombocytopenia [Unknown]
  - Central nervous system lesion [Unknown]
  - Sensory loss [Unknown]
  - Papilloedema [Unknown]
  - Post procedural infection [Unknown]
